FAERS Safety Report 6872723-6 (Version None)
Quarter: 2010Q3

REPORT INFORMATION
  Report Type: 
  Country: None (occurrence: None)
  Receive Date: 20100723
  Receipt Date: 20081023
  Transmission Date: 20110219
  Serious: No
  Sender: FDA-Public Use
  Company Number: US-PFIZER INC-2008089536

PATIENT
  Sex: Female
  Weight: 57.61 kg

DRUGS (5)
  1. CHANTIX [Suspect]
     Indication: SMOKING CESSATION THERAPY
     Route: 048
     Dates: start: 20080924, end: 20081019
  2. ATENOLOL [Concomitant]
  3. CLONIDINE [Concomitant]
  4. CALTRATE [Concomitant]
  5. VITAMIN D [Concomitant]

REACTIONS (8)
  - ABNORMAL DREAMS [None]
  - ADVERSE EVENT [None]
  - DECREASED APPETITE [None]
  - DYSGEUSIA [None]
  - DYSPEPSIA [None]
  - INSOMNIA [None]
  - MALAISE [None]
  - VOMITING [None]
